FAERS Safety Report 13879173 (Version 2)
Quarter: 2017Q3

REPORT INFORMATION
  Report Type: Spontaneous
  Country: US (occurrence: US)
  Receive Date: 20170817
  Receipt Date: 20170822
  Transmission Date: 20171127
  Serious: Yes (Other)
  Sender: FDA-Public Use
  Company Number: US-ABBVIE-17K-163-2071981-00

PATIENT
  Sex: Female

DRUGS (1)
  1. HUMIRA [Suspect]
     Active Substance: ADALIMUMAB
     Indication: PRODUCT USED FOR UNKNOWN INDICATION
     Route: 058
     Dates: start: 2016

REACTIONS (4)
  - Vaginal cancer [Unknown]
  - Latent tuberculosis [Not Recovered/Not Resolved]
  - Lymphadenopathy [Unknown]
  - Burning sensation [Unknown]

NARRATIVE: CASE EVENT DATE: 201707
